FAERS Safety Report 18883958 (Version 3)
Quarter: 2023Q2

REPORT INFORMATION
  Report Type: Spontaneous
  Country: US (occurrence: US)
  Receive Date: 20210211
  Receipt Date: 20230509
  Transmission Date: 20230722
  Serious: Yes (Other)
  Sender: FDA-Public Use
  Company Number: US-GILEAD-2021-0515550

PATIENT
  Age: 48 Year
  Sex: Male
  Weight: 91.6 kg

DRUGS (29)
  1. TRUVADA [Suspect]
     Active Substance: EMTRICITABINE\TENOFOVIR DISOPROXIL FUMARATE
     Indication: HIV infection
     Dosage: UNK
     Route: 048
     Dates: start: 2011
  2. TRUVADA [Suspect]
     Active Substance: EMTRICITABINE\TENOFOVIR DISOPROXIL FUMARATE
     Dosage: UNK
     Route: 048
     Dates: start: 200901, end: 2017
  3. DESCOVY [Concomitant]
     Active Substance: EMTRICITABINE\TENOFOVIR ALAFENAMIDE FUMARATE
  4. TYLENOL [Concomitant]
     Active Substance: ACETAMINOPHEN
  5. ISENTRESS [Concomitant]
     Active Substance: RALTEGRAVIR POTASSIUM
  6. TIVICAY [Concomitant]
     Active Substance: DOLUTEGRAVIR SODIUM
  7. ATORVASTATIN [Concomitant]
     Active Substance: ATORVASTATIN
  8. TADALAFIL [Concomitant]
     Active Substance: TADALAFIL
  9. ZOLPIDEM [Concomitant]
     Active Substance: ZOLPIDEM TARTRATE
  10. CIALIS [Concomitant]
     Active Substance: TADALAFIL
  11. OFLOXACIN [Concomitant]
     Active Substance: OFLOXACIN
  12. VALACYCLOVIR HYDROCHLORIDE [Concomitant]
     Active Substance: VALACYCLOVIR HYDROCHLORIDE
  13. EDLUAR [Concomitant]
     Active Substance: ZOLPIDEM TARTRATE
  14. PATANOL [Concomitant]
     Active Substance: OLOPATADINE HYDROCHLORIDE
  15. FLUTICASONE [Concomitant]
     Active Substance: FLUTICASONE
  16. PERMETHRIN [Concomitant]
     Active Substance: PERMETHRIN
  17. METHYLPREDNISOLONE [Concomitant]
     Active Substance: METHYLPREDNISOLONE
  18. MUPIROCIN [Concomitant]
     Active Substance: MUPIROCIN
  19. AMOXICILLIN [Concomitant]
     Active Substance: AMOXICILLIN
  20. TRAMADOL [Concomitant]
     Active Substance: TRAMADOL
  21. CHLORHEXIDINE [Concomitant]
     Active Substance: CHLORHEXIDINE
  22. AZITHROMYCIN [Concomitant]
     Active Substance: AZITHROMYCIN
  23. LIDOCAINE [Concomitant]
     Active Substance: LIDOCAINE
  24. ACETAMINOPHEN\HYDROCODONE [Concomitant]
     Active Substance: ACETAMINOPHEN\HYDROCODONE
  25. HALFLYTELY [Concomitant]
     Active Substance: POLYETHYLENE GLYCOL 3350\POTASSIUM CHLORIDE\SODIUM BICARBONATE\SODIUM CHLORIDE
  26. MINOCYCLINE [Concomitant]
     Active Substance: MINOCYCLINE HYDROCHLORIDE
  27. ASACOL [Concomitant]
     Active Substance: MESALAMINE
  28. CIPROFLOXACIN [Concomitant]
     Active Substance: CIPROFLOXACIN
  29. DEXTROAMPHET SACCHARAT, AMPHET ASPARTATE, DEXTROAMPHET SULFATE AND AMP [Concomitant]
     Active Substance: AMPHETAMINE ASPARTATE\AMPHETAMINE ASPARTATE MONOHYDRATE\AMPHETAMINE SULFATE\DEXTROAMPHETAMINE SACCHA

REACTIONS (7)
  - Renal impairment [Not Recovered/Not Resolved]
  - Bone density decreased [Not Recovered/Not Resolved]
  - Pain [Not Recovered/Not Resolved]
  - Emotional distress [Not Recovered/Not Resolved]
  - Anxiety [Not Recovered/Not Resolved]
  - Anhedonia [Not Recovered/Not Resolved]
  - Blood creatinine increased [Not Recovered/Not Resolved]

NARRATIVE: CASE EVENT DATE: 20110401
